FAERS Safety Report 4575092-X (Version None)
Quarter: 2005Q1

REPORT INFORMATION
  Report Type: 
  Country: None (occurrence: None)
  Receive Date: 20050208
  Receipt Date: 20050131
  Transmission Date: 20050727
  Serious: Yes (Other)
  Sender: FDA-Public Use
  Company Number: FR-GLAXOSMITHKLINE-B0369850A

PATIENT

DRUGS (1)
  1. MALARONE [Suspect]

REACTIONS (1)
  - VASCULITIS [None]
